FAERS Safety Report 5629833-0 (Version None)
Quarter: 2008Q1

REPORT INFORMATION
  Report Type: 
  Country: None (occurrence: None)
  Receive Date: 20080214
  Receipt Date: 20080204
  Transmission Date: 20080703
  Serious: Yes (Hospitalization)
  Sender: FDA-Public Use
  Company Number: 2008-170246-NL

PATIENT
  Age: 91 Year
  Sex: Female

DRUGS (11)
  1. MIRTAZAPINE [Suspect]
     Indication: ANXIETY
     Dosage: 30 MG/45 MG
     Dates: start: 20050101, end: 20071201
  2. MIRTAZAPINE [Suspect]
     Indication: PANIC DISORDER
     Dosage: 30 MG/45 MG
     Dates: start: 20050101, end: 20071201
  3. MIRTAZAPINE [Suspect]
     Indication: ANXIETY
     Dosage: 30 MG/45 MG
     Dates: start: 20071201, end: 20080107
  4. MIRTAZAPINE [Suspect]
     Indication: PANIC DISORDER
     Dosage: 30 MG/45 MG
     Dates: start: 20071201, end: 20080107
  5. ACETYLSALICYLIC ACID [Concomitant]
  6. PANADEINE [Concomitant]
  7. DIAZEPAM [Concomitant]
  8. LACTULOSE [Concomitant]
  9. FRUSEMIDE [Concomitant]
  10. ATORVASTATIN [Concomitant]
  11. MEBEVERINE [Concomitant]

REACTIONS (2)
  - ACUTE MYOCARDIAL INFARCTION [None]
  - OEDEMA PERIPHERAL [None]
